FAERS Safety Report 8815392 (Version 1)
Quarter: 2012Q4

REPORT INFORMATION
  Report Type: 
  Country: JP (occurrence: JP)
  Receive Date: 20120928
  Receipt Date: 20120928
  Transmission Date: 20130627
  Serious: Yes (Other)
  Sender: FDA-Public Use
  Company Number: JP-B.I. PHARMACEUTICALS,INC./RIDGEFIELD-2011-BP-27765YA

PATIENT
  Age: 83 Year
  Sex: Male
  Weight: 47 kg

DRUGS (5)
  1. HARNAL [Suspect]
     Indication: BENIGN PROSTATIC HYPERPLASIA
     Route: 048
     Dates: start: 19990604
  2. VESICARE (SOLIFENACIN) [Suspect]
     Indication: HYPERTONIC BLADDER
     Route: 048
     Dates: start: 20080130, end: 20111114
  3. EVIPROSTAT (CHIMAPHILA UMBELLATA, EQUISETUM ARVENSE, MANGANESE CHLORID [Concomitant]
     Dates: start: 20090916
  4. DIOVAN [Concomitant]
  5. ATELEC [Concomitant]

REACTIONS (1)
  - Glaucoma [Recovered/Resolved]
